FAERS Safety Report 5117375-0 (Version None)
Quarter: 2006Q3

REPORT INFORMATION
  Report Type: 
  Country: None (occurrence: None)
  Receive Date: 20060929
  Receipt Date: 20060918
  Transmission Date: 20061208
  Serious: Yes (Hospitalization)
  Sender: FDA-Public Use
  Company Number: US-JNJFOC-20060905526

PATIENT
  Age: 24 Year
  Sex: Female
  Weight: 77.11 kg

DRUGS (6)
  1. DURAGESIC-100 [Suspect]
     Indication: PAIN
     Route: 062
  2. PERCOCET [Concomitant]
     Indication: BACK PAIN
  3. GLUCOPHAGE [Concomitant]
  4. CYMBALTA [Concomitant]
     Indication: POLYCYSTIC OVARIES
  5. ZANAFLEX [Concomitant]
     Indication: MUSCLE RELAXANT THERAPY
  6. REGLAN [Concomitant]
     Indication: NAUSEA

REACTIONS (4)
  - CONVERSION DISORDER [None]
  - DEPRESSED LEVEL OF CONSCIOUSNESS [None]
  - DRUG WITHDRAWAL SYNDROME [None]
  - FEELING ABNORMAL [None]
